FAERS Safety Report 16308544 (Version 1)
Quarter: 2019Q2

REPORT INFORMATION
  Report Type: Spontaneous
  Country: IL (occurrence: IL)
  Receive Date: 20190514
  Receipt Date: 20190514
  Transmission Date: 20190711
  Serious: Yes (Other)
  Sender: FDA-Public Use
  Company Number: IL-ASTRAZENECA-2019SE69540

PATIENT
  Age: 64 Year
  Sex: Female

DRUGS (1)
  1. TAGRISSO [Suspect]
     Active Substance: OSIMERTINIB
     Indication: NON-SMALL CELL LUNG CANCER
     Dosage: 80.0MG UNKNOWN
     Route: 048

REACTIONS (3)
  - Metastases to liver [Unknown]
  - Hepatotoxicity [Unknown]
  - Metastases to central nervous system [Unknown]
